FAERS Safety Report 21690155 (Version 1)
Quarter: 2022Q4

REPORT INFORMATION
  Report Type: Spontaneous
  Country: CH (occurrence: CH)
  Receive Date: 20221206
  Receipt Date: 20221206
  Transmission Date: 20230113
  Serious: Yes (Life-Threatening, Hospitalization, Other)
  Sender: FDA-Public Use
  Company Number: None

PATIENT
  Sex: Female
  Weight: 80 kg

DRUGS (3)
  1. ESCITALOPRAM OXALATE [Suspect]
     Active Substance: ESCITALOPRAM OXALATE
     Indication: Depression
     Dosage: 20 MG, QD
     Route: 048
  2. OXAZEPAM [Concomitant]
     Active Substance: OXAZEPAM
  3. LEVOTHYROXINE [Concomitant]
     Active Substance: LEVOTHYROXINE
     Dosage: 0.05 MG
     Route: 048

REACTIONS (7)
  - Cardiac arrest [Not Recovered/Not Resolved]
  - Troponin T increased [Unknown]
  - Blood phosphorus increased [Unknown]
  - Tri-iodothyronine decreased [Unknown]
  - Hypokalaemia [Unknown]
  - Electrocardiogram QT prolonged [Unknown]
  - Drug level increased [Unknown]

NARRATIVE: CASE EVENT DATE: 20221014
